FAERS Safety Report 12723543 (Version 1)
Quarter: 2016Q3

REPORT INFORMATION
  Report Type: Spontaneous
  Country: US (occurrence: US)
  Receive Date: 20160908
  Receipt Date: 20160908
  Transmission Date: 20161109
  Serious: No
  Sender: FDA-Public Use
  Company Number: US-PFIZER INC-2016416799

PATIENT
  Age: 74 Year
  Sex: Female

DRUGS (6)
  1. SULFUR. [Concomitant]
     Active Substance: SULFUR
     Dosage: UNK
  2. METHOTREXATE SODIUM. [Suspect]
     Active Substance: METHOTREXATE SODIUM
     Dosage: UNK
  3. ENBREL [Concomitant]
     Active Substance: ETANERCEPT
     Indication: RHEUMATOID ARTHRITIS
     Dosage: 50MG UNK
     Route: 065
  4. PLAQUENIL [Concomitant]
     Active Substance: HYDROXYCHLOROQUINE SULFATE
     Dosage: UNK
  5. GOLD [Concomitant]
     Active Substance: GOLD
     Dosage: UNK
  6. PENICILLAMINE [Concomitant]
     Active Substance: PENICILLAMINE
     Dosage: UNK

REACTIONS (6)
  - Headache [Unknown]
  - Pyrexia [Unknown]
  - Dysstasia [Unknown]
  - Nausea [Unknown]
  - Vomiting [Unknown]
  - Chills [Unknown]
